FAERS Safety Report 21551864 (Version 1)
Quarter: 2022Q4

REPORT INFORMATION
  Report Type: Report from Study
  Country: US (occurrence: US)
  Receive Date: 20221104
  Receipt Date: 20221104
  Transmission Date: 20230112
  Serious: Yes (Other)
  Sender: FDA-Public Use
  Company Number: US-ABBVIE-4153221

PATIENT
  Sex: Female

DRUGS (3)
  1. HUMIRA [Suspect]
     Active Substance: ADALIMUMAB
     Indication: Rheumatoid arthritis
     Dosage: 40 MG
     Route: 058
  2. HUMIRA [Suspect]
     Active Substance: ADALIMUMAB
     Indication: Colitis ulcerative
  3. PREDNISONE [Suspect]
     Active Substance: PREDNISONE
     Indication: Product used for unknown indication
     Route: 065

REACTIONS (8)
  - Near death experience [Not Recovered/Not Resolved]
  - Lung disorder [Not Recovered/Not Resolved]
  - Alopecia [Recovering/Resolving]
  - Liver disorder [Recovering/Resolving]
  - Illness [Recovering/Resolving]
  - White blood cell count decreased [Recovering/Resolving]
  - Sarcoidosis [Not Recovered/Not Resolved]
  - Renal disorder [Recovering/Resolving]
